FAERS Safety Report 9298407 (Version 2)
Quarter: 2013Q3

REPORT INFORMATION
  Report Type: Spontaneous
  Country: DE (occurrence: DE)
  Receive Date: 20130520
  Receipt Date: 20130709
  Transmission Date: 20140515
  Serious: Yes (Other)
  Sender: FDA-Public Use
  Company Number: DE-009507513-1209DEU001385

PATIENT
  Age: 24 Year
  Sex: Female

DRUGS (3)
  1. NUVARING [Suspect]
     Indication: CONTRACEPTION
     Dosage: UNK
     Route: 067
     Dates: start: 20120702, end: 20120723
  2. NUVARING [Suspect]
     Dosage: UNK
     Route: 067
     Dates: start: 20120604, end: 20120625
  3. NUVARING [Suspect]
     Dosage: UNK
     Route: 067
     Dates: start: 2009

REACTIONS (5)
  - Caesarean section [Recovered/Resolved]
  - Foetal monitoring [Unknown]
  - Unintended pregnancy [Recovered/Resolved]
  - Injury [Unknown]
  - Mental disorder [Unknown]
